FAERS Safety Report 8553429 (Version 4)
Quarter: 2013Q3

REPORT INFORMATION
  Report Type: Report from Study
  Country: AU (occurrence: AU)
  Receive Date: 20120509
  Receipt Date: 20130920
  Transmission Date: 20140515
  Serious: Yes (Other)
  Sender: FDA-Public Use
  Company Number: PHHY2012AU038858

PATIENT
  Age: 34 Year
  Sex: Male

DRUGS (2)
  1. CLOZARIL [Suspect]
     Dosage: 100 MG, UNK
     Dates: start: 19980318, end: 201206
  2. ANTIPSYCHOTICS [Concomitant]
     Dosage: UNK UKN, UNK

REACTIONS (3)
  - Hepatitis C [Unknown]
  - Leukopenia [Recovered/Resolved]
  - Neutropenia [Unknown]
